FAERS Safety Report 15546663 (Version 3)
Quarter: 2018Q4

REPORT INFORMATION
  Report Type: Spontaneous
  Country: US (occurrence: US)
  Receive Date: 20181024
  Receipt Date: 20181129
  Transmission Date: 20190205
  Serious: Yes (Other)
  Sender: FDA-Public Use
  Company Number: US-AMGEN-USASP2018146618

PATIENT
  Age: 52 Year
  Sex: Male
  Weight: 139.5 kg

DRUGS (10)
  1. CALCITROL [Concomitant]
     Active Substance: CALCITRIOL
     Indication: HYPERPARATHYROIDISM TERTIARY
     Dosage: UNK
     Dates: start: 20150422
  2. AMLODIPINE [Concomitant]
     Active Substance: AMLODIPINE BESYLATE
     Dosage: 10 MG, QD
     Route: 048
     Dates: start: 20160325
  3. GLIPIZIDE. [Concomitant]
     Active Substance: GLIPIZIDE
     Dosage: 10 MG, BID
     Route: 048
  4. LABETALOL [Concomitant]
     Active Substance: LABETALOL\LABETALOL HYDROCHLORIDE
     Dosage: 100 MG, BID
     Route: 048
     Dates: start: 20160916
  5. PARSABIV [Suspect]
     Active Substance: ETELCALCETIDE HYDROCHLORIDE
     Indication: HYPERPARATHYROIDISM TERTIARY
     Dosage: 5 MG, 3 TIMES/WK
     Route: 042
     Dates: start: 20181003, end: 20181008
  6. HYDRALAZINE [Concomitant]
     Active Substance: HYDRALAZINE HYDROCHLORIDE
     Dosage: 100 MG, TID
     Route: 048
     Dates: start: 20180620
  7. CALCIUM ACETATE. [Concomitant]
     Active Substance: CALCIUM ACETATE
     Dosage: 667 MG, TID
     Route: 048
     Dates: start: 20180128
  8. GLIPIZIDE. [Concomitant]
     Active Substance: GLIPIZIDE
     Dosage: 2.5 MG, QD
     Route: 048
     Dates: start: 20180620
  9. CALCITROL [Concomitant]
     Active Substance: CALCITRIOL
     Dosage: 1.25 MUG, QD
     Dates: start: 20180518
  10. ACETAMINOPHEN AND CODEINE [Concomitant]
     Active Substance: ACETAMINOPHEN\CODEINE PHOSPHATE
     Indication: PAIN
     Dosage: UNK UNK, BID
     Route: 048
     Dates: start: 20181105

REACTIONS (3)
  - Drug hypersensitivity [Unknown]
  - Vision blurred [Recovered/Resolved]
  - Off label use [Unknown]

NARRATIVE: CASE EVENT DATE: 20181003
